FAERS Safety Report 5403509-7 (Version None)
Quarter: 2007Q3

REPORT INFORMATION
  Report Type: 
  Country: None (occurrence: None)
  Receive Date: 20070713
  Receipt Date: 20070125
  Transmission Date: 20080115
  Serious: No
  Sender: FDA-Public Use
  Company Number: US-JNJFOC-20060601794

PATIENT
  Age: 42 Year
  Sex: Female
  Weight: 66.6788 kg

DRUGS (3)
  1. ORTHO EVRA [Suspect]
     Indication: MENSTRUATION IRREGULAR
     Dosage: 4 IN 4 WEEKS, TRANSDERMAL
     Route: 062
     Dates: start: 20040901, end: 20060112
  2. ORTHO EVRA [Suspect]
     Indication: MENSTRUATION IRREGULAR
     Dosage: 4 IN 4 WEEKS, TRANSDERMAL
     Route: 062
     Dates: start: 20060119, end: 20060215
  3. FIORINAL [Suspect]
     Indication: UNEVALUABLE EVENT

REACTIONS (3)
  - INAPPROPRIATE SCHEDULE OF DRUG ADMINISTRATION [None]
  - METRORRHAGIA [None]
  - RASH PRURITIC [None]
